FAERS Safety Report 7562823-X (Version None)
Quarter: 2011Q2

REPORT INFORMATION
  Report Type: 
  Country: None (occurrence: None)
  Receive Date: 20110621
  Receipt Date: 20110621
  Transmission Date: 20111010
  Serious: Yes (Life-Threatening)
  Sender: FDA-Public Use
  Company Number: None

PATIENT
  Age: 55 Year
  Sex: Male
  Weight: 97 kg

DRUGS (1)
  1. ACETYLCYSTEINE [Suspect]
     Indication: CARDIAC OPERATION
     Dosage: 6 ML BID PO
     Route: 048
     Dates: start: 20110608, end: 20110608

REACTIONS (6)
  - ANAPHYLACTIC REACTION [None]
  - HYPOTENSION [None]
  - URTICARIA [None]
  - PRURITUS [None]
  - ANGIOEDEMA [None]
  - RESPIRATORY DEPRESSION [None]
